FAERS Safety Report 22396339 (Version 1)
Quarter: 2023Q2

REPORT INFORMATION
  Report Type: Spontaneous
  Country: US (occurrence: US)
  Receive Date: 20230601
  Receipt Date: 20230601
  Transmission Date: 20230721
  Serious: No
  Sender: FDA-Public Use
  Company Number: US-APIL-2310217US

PATIENT
  Age: 50 Year
  Sex: Female
  Weight: 78.47 kg

DRUGS (3)
  1. BOTOX [Suspect]
     Active Substance: ONABOTULINUMTOXINA
     Indication: Blepharospasm
     Dosage: UNK UNK, SINGLE
     Dates: start: 20230209, end: 20230209
  2. BOTOX [Suspect]
     Active Substance: ONABOTULINUMTOXINA
     Indication: Apraxia
     Dosage: UNK UNK, SINGLE
     Dates: start: 20230209, end: 20230209
  3. BOTOX [Suspect]
     Active Substance: ONABOTULINUMTOXINA
     Dosage: 100 UNITS, SINGLE
     Dates: start: 201711, end: 201711

REACTIONS (3)
  - Excessive eye blinking [Not Recovered/Not Resolved]
  - Loss of personal independence in daily activities [Unknown]
  - Drug ineffective [Unknown]

NARRATIVE: CASE EVENT DATE: 20230301
